FAERS Safety Report 14078372 (Version 2)
Quarter: 2017Q4

REPORT INFORMATION
  Report Type: Spontaneous
  Country: US (occurrence: US)
  Receive Date: 20171012
  Receipt Date: 20171120
  Transmission Date: 20180321
  Serious: No
  Sender: FDA-Public Use
  Company Number: US-PFIZER INC-2017437546

PATIENT
  Sex: Female

DRUGS (1)
  1. NARDIL [Suspect]
     Active Substance: PHENELZINE SULFATE
     Dosage: UNK

REACTIONS (2)
  - Toxicity to various agents [Unknown]
  - Food intolerance [Unknown]
